FAERS Safety Report 6727992-X (Version None)
Quarter: 2010Q2

REPORT INFORMATION
  Report Type: 
  Country: None (occurrence: None)
  Receive Date: 20100517
  Receipt Date: 20100507
  Transmission Date: 20101027
  Serious: Yes (Other)
  Sender: FDA-Public Use
  Company Number: BR-SANOFI-AVENTIS-2010SA025442

PATIENT
  Age: 15 Year
  Sex: Female
  Weight: 40 kg

DRUGS (4)
  1. ZOLPIDEM [Suspect]
     Indication: INSOMNIA
     Dosage: STARTED ^4 DAYS AGO^.
     Route: 048
     Dates: start: 20100429, end: 20100429
  2. ZOLPIDEM [Suspect]
     Route: 048
     Dates: start: 20100501, end: 20100501
  3. ZOLPIDEM [Suspect]
     Route: 048
     Dates: start: 20100502, end: 20100502
  4. ANAFRANIL [Concomitant]
     Indication: DEPRESSION
     Dosage: STARTED ^1.5 MONTH AGO^: 1.25 TABLET/DAY (75 MG TABLET).
     Route: 048
     Dates: start: 20100301

REACTIONS (12)
  - AGITATION [None]
  - DELIRIUM [None]
  - DIZZINESS [None]
  - FEAR [None]
  - HALLUCINATION, VISUAL [None]
  - NASAL CONGESTION [None]
  - PRODUCT QUALITY ISSUE [None]
  - SALIVA ALTERED [None]
  - STARING [None]
  - TREMOR [None]
  - TRISMUS [None]
  - VISION BLURRED [None]
